FAERS Safety Report 4976209-5 (Version None)
Quarter: 2006Q2

REPORT INFORMATION
  Report Type: 
  Country: None (occurrence: None)
  Receive Date: 20060419
  Receipt Date: 20060126
  Transmission Date: 20061013
  Serious: Yes (Hospitalization)
  Sender: FDA-Public Use
  Company Number: IT-AVENTIS-200610892GDDC

PATIENT
  Age: 32 Year
  Sex: Female

DRUGS (2)
  1. KETEK [Suspect]
     Indication: NASAL POLYPS
     Route: 048
     Dates: start: 20051228, end: 20060118
  2. DELTACORTENE [Concomitant]
     Route: 048
     Dates: start: 20051228, end: 20060118

REACTIONS (3)
  - GAMMA-GLUTAMYLTRANSFERASE INCREASED [None]
  - HEPATITIS [None]
  - TRANSAMINASES INCREASED [None]
